FAERS Safety Report 11303769 (Version 1)
Quarter: 2015Q3

REPORT INFORMATION
  Report Type: Spontaneous
  Country: US (occurrence: US)
  Receive Date: 20150723
  Receipt Date: 20150723
  Transmission Date: 20151125
  Serious: No
  Sender: FDA-Public Use
  Company Number: US-GALDERMA-US14003384

PATIENT
  Sex: Male

DRUGS (1)
  1. ORACEA [Suspect]
     Active Substance: DOXYCYCLINE
     Dosage: 40MG
     Route: 048
     Dates: start: 201409

REACTIONS (2)
  - Abdominal pain upper [Not Recovered/Not Resolved]
  - Non-cardiac chest pain [Not Recovered/Not Resolved]

NARRATIVE: CASE EVENT DATE: 201409
